FAERS Safety Report 13426550 (Version 1)
Quarter: 2017Q2

REPORT INFORMATION
  Report Type: Spontaneous
  Country: CN (occurrence: CN)
  Receive Date: 20170411
  Receipt Date: 20170411
  Transmission Date: 20170830
  Serious: Yes (Life-Threatening, Hospitalization)
  Sender: FDA-Public Use
  Company Number: CN-ASTRAZENECA-2017SE31774

PATIENT
  Age: 785 Month
  Sex: Female

DRUGS (1)
  1. IRESSA [Suspect]
     Active Substance: GEFITINIB
     Indication: NON-SMALL CELL LUNG CANCER
     Route: 048
     Dates: start: 20170228, end: 20170323

REACTIONS (5)
  - Asthenia [Not Recovered/Not Resolved]
  - Petechiae [Recovering/Resolving]
  - Coagulopathy [Unknown]
  - Decreased appetite [Not Recovered/Not Resolved]
  - Alanine aminotransferase increased [Unknown]

NARRATIVE: CASE EVENT DATE: 20170316
